FAERS Safety Report 6015355-4 (Version None)
Quarter: 2008Q4

REPORT INFORMATION
  Report Type: 
  Country: None (occurrence: None)
  Receive Date: 20081218
  Receipt Date: 20081210
  Transmission Date: 20090506
  Serious: Yes (Hospitalization)
  Sender: FDA-Public Use
  Company Number: STI-2008-03648

PATIENT
  Age: 57 Year
  Sex: Female

DRUGS (3)
  1. ERYTHROMYCIN [Suspect]
     Indication: DECUBITUS ULCER
  2. CEFUROXIME [Suspect]
     Indication: DECUBITUS ULCER
  3. FLOXACILLIN SODIUM [Suspect]
     Indication: DECUBITUS ULCER

REACTIONS (7)
  - ABDOMINAL DISTENSION [None]
  - BLOOD ALBUMIN DECREASED [None]
  - BLOOD CULTURE POSITIVE [None]
  - CLOSTRIDIUM DIFFICILE COLITIS [None]
  - ENTEROCOLITIS INFECTIOUS [None]
  - KLEBSIELLA INFECTION [None]
  - NEUTROPHILIA [None]
